FAERS Safety Report 17719968 (Version 1)
Quarter: 2020Q2

REPORT INFORMATION
  Report Type: Spontaneous
  Country: IN (occurrence: IN)
  Receive Date: 20200428
  Receipt Date: 20200428
  Transmission Date: 20200714
  Serious: Yes (Other)
  Sender: FDA-Public Use
  Company Number: IN-FRESENIUS KABI-FK202004134

PATIENT
  Age: 26 Year
  Sex: Female

DRUGS (3)
  1. CISPLATIN. [Concomitant]
     Active Substance: CISPLATIN
     Indication: OVARIAN DYSGERMINOMA STAGE UNSPECIFIED
     Dosage: DAY 1-5
     Route: 065
  2. BLEOMYCIN [Suspect]
     Active Substance: BLEOMYCIN SULFATE
     Indication: OVARIAN DYSGERMINOMA STAGE UNSPECIFIED
     Dosage: DAY 1, 8 AND 15
     Route: 065
  3. ETOPOSIDE. [Concomitant]
     Active Substance: ETOPOSIDE
     Indication: OVARIAN DYSGERMINOMA STAGE UNSPECIFIED
     Dosage: DAY 1-5
     Route: 065

REACTIONS (1)
  - Flagellate dermatitis [Not Recovered/Not Resolved]
